FAERS Safety Report 14755958 (Version 5)
Quarter: 2018Q4

REPORT INFORMATION
  Report Type: Spontaneous
  Country: US (occurrence: US)
  Receive Date: 20180413
  Receipt Date: 20181219
  Transmission Date: 20190204
  Serious: No
  Sender: FDA-Public Use
  Company Number: US-PFIZER INC-2018150640

PATIENT
  Age: 76 Year
  Sex: Female

DRUGS (1)
  1. XELJANZ XR [Suspect]
     Active Substance: TOFACITINIB CITRATE
     Indication: RHEUMATOID ARTHRITIS
     Dosage: 11 MG, UNK
     Dates: start: 201803, end: 201812

REACTIONS (6)
  - Nasal congestion [Unknown]
  - Drug ineffective [Unknown]
  - Rash [Unknown]
  - Anaemia [Unknown]
  - Fungal infection [Unknown]
  - Colitis [Unknown]

NARRATIVE: CASE EVENT DATE: 20180411
